FAERS Safety Report 6477611-5 (Version None)
Quarter: 2009Q4

REPORT INFORMATION
  Report Type: 
  Country: None (occurrence: None)
  Receive Date: 20091203
  Receipt Date: 20091203
  Transmission Date: 20100525
  Serious: No
  Sender: FDA-Public Use
  Company Number: None

PATIENT
  Age: 70 Year
  Sex: Male
  Weight: 104.3273 kg

DRUGS (1)
  1. GABAPENTIN [Suspect]
     Indication: NEUROPATHY PERIPHERAL
     Dosage: 200 MG 3 TMES A DAY PO
     Route: 048
     Dates: start: 20090930, end: 20091123

REACTIONS (4)
  - BACK PAIN [None]
  - BLISTER [None]
  - BLOOD PRESSURE INCREASED [None]
  - PAIN [None]
